FAERS Safety Report 23098876 (Version 1)
Quarter: 2023Q4

REPORT INFORMATION
  Report Type: Spontaneous
  Country: US (occurrence: US)
  Receive Date: 20231024
  Receipt Date: 20231024
  Transmission Date: 20240109
  Serious: Yes (Other)
  Sender: FDA-Public Use
  Company Number: US-LUPIN PHARMACEUTICALS INC.-2023-09126

PATIENT
  Age: 73 Year
  Sex: Male

DRUGS (1)
  1. PHENYTOIN SODIUM [Suspect]
     Active Substance: PHENYTOIN SODIUM
     Indication: Generalised tonic-clonic seizure
     Dosage: 200 MG, TID
     Route: 065

REACTIONS (3)
  - Toxicity to various agents [Recovered/Resolved]
  - Drug level above therapeutic [Unknown]
  - Pseudostroke [Recovered/Resolved]
